FAERS Safety Report 10345884 (Version 3)
Quarter: 2019Q3

REPORT INFORMATION
  Report Type: Report from Study
  Country: DE (occurrence: DE)
  Receive Date: 20140728
  Receipt Date: 20190820
  Transmission Date: 20191004
  Serious: Yes (Other)
  Sender: FDA-Public Use
  Company Number: DE-BRISTOL-MYERS SQUIBB COMPANY-21238332

PATIENT
  Age: 60 Year
  Sex: Male
  Weight: 66 kg

DRUGS (1)
  1. CETUXIMAB. [Suspect]
     Active Substance: CETUXIMAB
     Indication: SQUAMOUS CELL CARCINOMA OF HEAD AND NECK
     Dosage: 250 MILLIGRAM/SQ. METER, QWK
     Route: 042
     Dates: start: 20140218

REACTIONS (2)
  - Skin reaction [Recovered/Resolved]
  - Squamous cell carcinoma of head and neck [Recovered/Resolved]

NARRATIVE: CASE EVENT DATE: 20140318
